FAERS Safety Report 5330105-2 (Version None)
Quarter: 2007Q2

REPORT INFORMATION
  Report Type: 
  Country: None (occurrence: None)
  Receive Date: 20070515
  Receipt Date: 20070502
  Transmission Date: 20071010
  Serious: Yes (Hospitalization)
  Sender: FDA-Public Use
  Company Number: 233206K07USA

PATIENT
  Age: 44 Year
  Sex: Female
  Weight: 59.4212 kg

DRUGS (8)
  1. REBIF [Suspect]
     Indication: MULTIPLE SCLEROSIS
     Dosage: 44 MCG, 3 IN 1 WEEKS, SUBCUTANEOUS
     Route: 058
     Dates: start: 20060807, end: 20070420
  2. LIPITOR [Suspect]
     Indication: MULTIPLE SCLEROSIS
     Dosage: 1 IN 1 DAYS
     Dates: end: 20070401
  3. PROZAC [Concomitant]
  4. ASTELIN [Concomitant]
  5. BACLOFEN [Concomitant]
  6. AMANTADINE (AMANTADINE /00055901/) [Concomitant]
  7. EXCEDRIN (EXCEDRIN /00214201/) [Concomitant]
  8. ADVIL [Concomitant]

REACTIONS (3)
  - APPETITE DISORDER [None]
  - HEPATOTOXICITY [None]
  - VOMITING [None]
